FAERS Safety Report 22695929 (Version 3)
Quarter: 2024Q1

REPORT INFORMATION
  Report Type: Spontaneous
  Country: US (occurrence: US)
  Receive Date: 20230712
  Receipt Date: 20240227
  Transmission Date: 20240409
  Serious: No
  Sender: FDA-Public Use
  Company Number: US-LUPIN PHARMACEUTICALS INC.-2023-05469

PATIENT

DRUGS (1)
  1. ALBUTEROL SULFATE [Suspect]
     Active Substance: ALBUTEROL SULFATE
     Indication: Asthma
     Dosage: UNK UNK, QID, 1 PUFF BY MOUTH EVERY 6 HOUR

REACTIONS (4)
  - Device delivery system issue [Unknown]
  - Device deposit issue [Unknown]
  - Incorrect dose administered by device [Unknown]
  - No adverse event [Unknown]
